FAERS Safety Report 13497952 (Version 1)
Quarter: 2017Q2

REPORT INFORMATION
  Report Type: Spontaneous
  Country: US (occurrence: US)
  Receive Date: 20170428
  Receipt Date: 20170428
  Transmission Date: 20170830
  Serious: Yes (Other)
  Sender: FDA-Public Use
  Company Number: US-BIOGEN-2017BI00392965

PATIENT
  Age: 34 Year
  Sex: Female

DRUGS (1)
  1. AVONEX [Suspect]
     Active Substance: INTERFERON BETA-1A
     Indication: MULTIPLE SCLEROSIS
     Route: 065
     Dates: start: 20170316

REACTIONS (5)
  - Abdominal distension [Unknown]
  - Abdominal rigidity [Unknown]
  - Liver function test increased [Unknown]
  - Hypotension [Unknown]
  - Epilepsy [Unknown]

NARRATIVE: CASE EVENT DATE: 201703
